FAERS Safety Report 11754827 (Version 2)
Quarter: 2015Q4

REPORT INFORMATION
  Report Type: Spontaneous
  Country: US (occurrence: US)
  Receive Date: 20151119
  Receipt Date: 20151223
  Transmission Date: 20160304
  Serious: Yes (Other)
  Sender: FDA-Public Use
  Company Number: US-ELI_LILLY_AND_COMPANY-US201511003324

PATIENT
  Age: 37 Year
  Sex: Male

DRUGS (1)
  1. ZYPREXA [Suspect]
     Active Substance: OLANZAPINE
     Indication: PRODUCT USED FOR UNKNOWN INDICATION
     Dosage: UNK, UNKNOWN
     Route: 065

REACTIONS (13)
  - Dry mouth [Unknown]
  - Dizziness [Unknown]
  - Blood cholesterol increased [Unknown]
  - Weight increased [Unknown]
  - Alopecia [Unknown]
  - Onychophagia [Unknown]
  - Stress [Unknown]
  - Dyspepsia [Unknown]
  - Fatigue [Unknown]
  - Hypertension [Unknown]
  - Increased appetite [Unknown]
  - Somnolence [Unknown]
  - Hypersomnia [Unknown]
